FAERS Safety Report 13646857 (Version 8)
Quarter: 2018Q1

REPORT INFORMATION
  Report Type: Spontaneous
  Country: US (occurrence: US)
  Receive Date: 20170613
  Receipt Date: 20180129
  Transmission Date: 20180508
  Serious: Yes (Other)
  Sender: FDA-Public Use
  Company Number: PHEH2017US017934

PATIENT
  Age: 31 Year
  Sex: Female
  Weight: 90.7 kg

DRUGS (3)
  1. ZOFRAN [Suspect]
     Active Substance: ONDANSETRON HYDROCHLORIDE
     Indication: VOMITING IN PREGNANCY
     Dosage: 08 MG, Q6H
     Route: 048
     Dates: start: 20110321, end: 20110927
  2. ONDANSETRON [Suspect]
     Active Substance: ONDANSETRON
     Indication: PRODUCT USED FOR UNKNOWN INDICATION
     Route: 065
  3. ZOFRAN [Suspect]
     Active Substance: ONDANSETRON HYDROCHLORIDE
     Indication: VOMITING IN PREGNANCY
     Dosage: 8 MG, Q6H
     Route: 042
     Dates: start: 20110321, end: 20110927

REACTIONS (19)
  - Gastrooesophageal reflux disease [Unknown]
  - Fatigue [Unknown]
  - Anxiety [Unknown]
  - Depression [Unknown]
  - Amniotic cavity infection [Unknown]
  - Maternal exposure during pregnancy [Unknown]
  - Emotional distress [Unknown]
  - Anhedonia [Unknown]
  - Chest pain [Unknown]
  - Product use in unapproved indication [Unknown]
  - Premature delivery [Unknown]
  - Anaemia [Unknown]
  - Oligohydramnios [Unknown]
  - Injury [Unknown]
  - Chronic villitis of unknown etiology [Unknown]
  - Pharyngitis [Unknown]
  - Pain [Unknown]
  - Bronchitis [Unknown]
  - Back pain [Unknown]

NARRATIVE: CASE EVENT DATE: 20110928
